FAERS Safety Report 15377284 (Version 3)
Quarter: 2018Q3

REPORT INFORMATION
  Report Type: Spontaneous
  Country: US (occurrence: US)
  Receive Date: 20180913
  Receipt Date: 20180924
  Transmission Date: 20181010
  Serious: No
  Sender: FDA-Public Use
  Company Number: US-PFIZER INC-2018367059

PATIENT
  Age: 67 Year
  Sex: Female
  Weight: 40.82 kg

DRUGS (1)
  1. METHOTREXATE SODIUM. [Suspect]
     Active Substance: METHOTREXATE SODIUM
     Indication: RHEUMATOID ARTHRITIS
     Dosage: 0.5 ML, WEEKLY
     Route: 058

REACTIONS (4)
  - Finger deformity [Unknown]
  - Drug effect incomplete [Unknown]
  - Arthropathy [Unknown]
  - Foot deformity [Unknown]
